FAERS Safety Report 22398486 (Version 5)
Quarter: 2024Q1

REPORT INFORMATION
  Report Type: Report from Study
  Country: CA (occurrence: CA)
  Receive Date: 20230602
  Receipt Date: 20240130
  Transmission Date: 20240409
  Serious: Yes (Other)
  Sender: FDA-Public Use
  Company Number: CA-JNJFOC-20230249832

PATIENT
  Age: 52 Year
  Sex: Female

DRUGS (5)
  1. REMICADE [Suspect]
     Active Substance: INFLIXIMAB
     Indication: Colitis ulcerative
     Route: 041
     Dates: start: 20220817
  2. REMICADE [Suspect]
     Active Substance: INFLIXIMAB
     Route: 041
     Dates: start: 20230817
  3. REMICADE [Suspect]
     Active Substance: INFLIXIMAB
     Route: 041
     Dates: start: 20230125
  4. REMICADE [Suspect]
     Active Substance: INFLIXIMAB
     Route: 041
     Dates: start: 20231227
  5. REMICADE [Suspect]
     Active Substance: INFLIXIMAB
     Route: 041
     Dates: start: 20211025

REACTIONS (9)
  - Haemorrhage [Unknown]
  - Neoplasm malignant [Unknown]
  - Aspergillus infection [Not Recovered/Not Resolved]
  - Urinary tract infection [Unknown]
  - Drug hypersensitivity [Unknown]
  - Limb injury [Unknown]
  - Eczema [Unknown]
  - Contusion [Unknown]
  - Illness [Unknown]

NARRATIVE: CASE EVENT DATE: 20230207
